FAERS Safety Report 6749362-0 (Version None)
Quarter: 2010Q2

REPORT INFORMATION
  Report Type: 
  Country: None (occurrence: None)
  Receive Date: 20100601
  Receipt Date: 20051011
  Transmission Date: 20101027
  Serious: Yes (Other)
  Sender: FDA-Public Use
  Company Number: PHHY2005CL02170

PATIENT
  Age: 66 Year
  Sex: Female

DRUGS (1)
  1. MIACALCIN [Suspect]
     Route: 045

REACTIONS (2)
  - INFLUENZA [None]
  - PNEUMONITIS [None]
